FAERS Safety Report 11916303 (Version 1)
Quarter: 2016Q1

REPORT INFORMATION
  Report Type: Spontaneous
  Country: US (occurrence: US)
  Receive Date: 20160114
  Receipt Date: 20160114
  Transmission Date: 20160526
  Serious: No
  Sender: FDA-Public Use
  Company Number: US-SHIRE-US201600288

PATIENT
  Sex: Female

DRUGS (1)
  1. VYVANSE [Suspect]
     Active Substance: LISDEXAMFETAMINE DIMESYLATE
     Indication: PRODUCT USED FOR UNKNOWN INDICATION
     Dosage: 120 MG (TWO 60 MG CAPSULES), 1X/DAY:QD (EVERY MORNING)
     Route: 048

REACTIONS (2)
  - Raynaud^s phenomenon [Not Recovered/Not Resolved]
  - Prescribed overdose [Not Recovered/Not Resolved]
